FAERS Safety Report 22117987 (Version 1)
Quarter: 2023Q1

REPORT INFORMATION
  Report Type: Spontaneous
  Country: US (occurrence: None)
  Receive Date: 20230321
  Receipt Date: 20230321
  Transmission Date: 20230417
  Serious: No
  Sender: FDA-Public Use
  Company Number: US-ROCHE-3266864

PATIENT
  Sex: Female
  Weight: 73.548 kg

DRUGS (2)
  1. VABYSMO [Suspect]
     Active Substance: FARICIMAB-SVOA
     Indication: Neovascular age-related macular degeneration
     Dosage: ONGOING: YES
     Route: 050
     Dates: start: 20221030
  2. VALSARTAN [Concomitant]
     Active Substance: VALSARTAN
     Indication: Hypertension
     Route: 048

REACTIONS (6)
  - Dry mouth [Not Recovered/Not Resolved]
  - Eye disorder [Recovered/Resolved]
  - Musculoskeletal disorder [Unknown]
  - Off label use [Unknown]
  - Joint stiffness [Not Recovered/Not Resolved]
  - Bone pain [Not Recovered/Not Resolved]
